FAERS Safety Report 9516367 (Version 2)
Quarter: 2013Q3

REPORT INFORMATION
  Report Type: Spontaneous
  Country: AU (occurrence: None)
  Receive Date: 20130909
  Receipt Date: 20130923
  Transmission Date: 20140515
  Serious: Yes (Life-Threatening, Hospitalization, Other)
  Sender: FDA-Public Use
  Company Number: AUR-APL-2013-07411

PATIENT
  Age: 12 Month
  Sex: Female
  Weight: 3.34 kg

DRUGS (5)
  1. QUETIAPINE [Suspect]
     Indication: PRODUCT USED FOR UNKNOWN INDICATION
  2. OLANZAPINE [Suspect]
     Indication: PRODUCT USED FOR UNKNOWN INDICATION
  3. LAMOTRIGINE [Concomitant]
  4. MIRTAZAPINE [Concomitant]
  5. SERTRALINE [Concomitant]

REACTIONS (2)
  - Drug withdrawal syndrome neonatal [None]
  - Neonatal respiratory distress syndrome [None]
